FAERS Safety Report 19703231 (Version 9)
Quarter: 2022Q3

REPORT INFORMATION
  Report Type: Report from Study
  Country: PL (occurrence: None)
  Receive Date: 20210816
  Receipt Date: 20220720
  Transmission Date: 20221027
  Serious: Yes (Life-Threatening, Hospitalization)
  Sender: FDA-Public Use
  Company Number: PL-ROCHE-2803983

PATIENT
  Age: 69 Year
  Sex: Female
  Weight: 69 kg

DRUGS (13)
  1. ATEZOLIZUMAB [Suspect]
     Active Substance: ATEZOLIZUMAB
     Indication: Renal cell carcinoma
     Dosage: ON 10/MAR/2021, SHE RECEIVED THE MOST RECENT DOSE OF ATEZOLIZUMAB (1200 MG) PRIOR TO SERIOUS ADVERSE
     Route: 041
     Dates: start: 20210310
  2. CABOZANTINIB [Suspect]
     Active Substance: CABOZANTINIB
     Indication: Renal cell carcinoma
     Dosage: ON 14/MAR/2021, SHE RECEIVED THE MOST RECENT DOSE OF CABOZANTINIB (60 MG) PRIOR TO ADVERSE EVENT ONS
     Route: 048
     Dates: start: 20210310
  3. LEVOTHYROXINE SODIUM [Concomitant]
     Active Substance: LEVOTHYROXINE SODIUM
     Indication: Hypothyroidism
     Route: 048
     Dates: start: 2020, end: 20211116
  4. CANDESARTAN CILEXETIL [Concomitant]
     Active Substance: CANDESARTAN CILEXETIL
     Indication: Hypertension
     Route: 048
     Dates: start: 2016, end: 20210330
  5. AMLOPIN [Concomitant]
     Indication: Hypertension
     Route: 048
     Dates: start: 2016, end: 20210330
  6. METOPROLOL SUCCINATE [Concomitant]
     Active Substance: METOPROLOL SUCCINATE
     Indication: Hypertension
     Route: 048
     Dates: start: 2016, end: 20210330
  7. METOPROLOL SUCCINATE [Concomitant]
     Active Substance: METOPROLOL SUCCINATE
     Route: 048
     Dates: start: 20210331
  8. NIVOLUMAB [Concomitant]
     Active Substance: NIVOLUMAB
     Dates: start: 20201110, end: 20210218
  9. RAMIPRIL [Concomitant]
     Active Substance: RAMIPRIL
     Indication: Hypertension
     Route: 048
     Dates: start: 20210331, end: 20210620
  10. LECALPIN [Concomitant]
     Indication: Hypertension
     Route: 048
     Dates: start: 20210331, end: 20210620
  11. DOXANORM [Concomitant]
     Indication: Hypertension
     Route: 048
     Dates: start: 20210331, end: 20210620
  12. FUROSEMIDE [Concomitant]
     Active Substance: FUROSEMIDE
     Indication: Hypertension
     Dosage: 1 TABLET
     Route: 048
     Dates: start: 20210331, end: 20211006
  13. SPIRONOLACTONE [Concomitant]
     Active Substance: SPIRONOLACTONE
     Indication: Hypertension
     Route: 048
     Dates: start: 20210331, end: 20211116

REACTIONS (2)
  - Neutropenia [Recovered/Resolved]
  - Liver function test increased [Recovered/Resolved]

NARRATIVE: CASE EVENT DATE: 20210316
